APPROVED DRUG PRODUCT: NIFEDIPINE
Active Ingredient: NIFEDIPINE
Strength: 60MG
Dosage Form/Route: TABLET, EXTENDED RELEASE;ORAL
Application: A090602 | Product #002
Applicant: RISING PHARMA HOLDING INC
Approved: Sep 13, 2010 | RLD: No | RS: No | Type: DISCN